FAERS Safety Report 24878060 (Version 1)
Quarter: 2025Q1

REPORT INFORMATION
  Report Type: Spontaneous
  Country: US (occurrence: None)
  Receive Date: 20250123
  Receipt Date: 20250123
  Transmission Date: 20250409
  Serious: Yes (Hospitalization)
  Sender: FDA-CTU
  Company Number: None

PATIENT
  Sex: Female

DRUGS (2)
  1. DACARBAZINE [Suspect]
     Active Substance: DACARBAZINE
     Dates: end: 20241230
  2. DOXORUBICIN HYDROCHLORIDE [Suspect]
     Active Substance: DOXORUBICIN HYDROCHLORIDE
     Dates: end: 20241230

REACTIONS (8)
  - Fluid intake reduced [None]
  - Pseudomonal bacteraemia [None]
  - Asthenia [None]
  - Fall [None]
  - Chills [None]
  - Tachycardia [None]
  - Blood creatinine increased [None]
  - Catheter site infection [None]

NARRATIVE: CASE EVENT DATE: 20250108
